FAERS Safety Report 9902870 (Version 8)
Quarter: 2015Q1

REPORT INFORMATION
  Report Type: Report from Study
  Country: US (occurrence: US)
  Receive Date: 20140217
  Receipt Date: 20150130
  Transmission Date: 20150721
  Serious: Yes (Hospitalization, Other)
  Sender: FDA-Public Use
  Company Number: PHEH2014US000560

PATIENT
  Age: 58 Year
  Sex: Female

DRUGS (17)
  1. NEORAL [Suspect]
     Active Substance: CYCLOSPORINE
     Indication: RENAL TRANSPLANT
     Dosage: 75 MG, Q12H
     Route: 048
     Dates: start: 19900321
  2. LEVOTHYROXINE [Concomitant]
     Active Substance: LEVOTHYROXINE
     Indication: PRODUCT USED FOR UNKNOWN INDICATION
     Route: 065
  3. CLONAZEPAM. [Concomitant]
     Active Substance: CLONAZEPAM
     Indication: PRODUCT USED FOR UNKNOWN INDICATION
     Dosage: 0.5 MG, BID
     Route: 065
  4. CELEXA [Concomitant]
     Active Substance: CITALOPRAM HYDROBROMIDE
     Indication: PRODUCT USED FOR UNKNOWN INDICATION
     Route: 065
  5. NEORAL [Suspect]
     Active Substance: CYCLOSPORINE
     Dosage: 25 MG, Q12H
     Route: 048
  6. CATAPRES-TTS [Concomitant]
     Active Substance: CLONIDINE
     Indication: PRODUCT USED FOR UNKNOWN INDICATION
     Dosage: 3 DF
     Route: 065
  7. PREDNISONE. [Suspect]
     Active Substance: PREDNISONE
     Indication: RENAL TRANSPLANT
     Dosage: 2.5 MG, DAILY
     Route: 048
     Dates: start: 19900329
  8. METOPROLOL [Concomitant]
     Active Substance: METOPROLOL
     Indication: HYPERTENSION
     Dosage: 25 MG, BID
     Route: 048
     Dates: start: 20091216
  9. PHENERGAN [Concomitant]
     Active Substance: PROMETHAZINE HYDROCHLORIDE
     Indication: PRODUCT USED FOR UNKNOWN INDICATION
     Route: 065
  10. NEORAL [Suspect]
     Active Substance: CYCLOSPORINE
     Dosage: 25 MG, BID
     Route: 048
  11. NEORAL [Suspect]
     Active Substance: CYCLOSPORINE
     Dosage: UNK
     Route: 048
  12. HYDRALAZINE [Concomitant]
     Active Substance: HYDRALAZINE HYDROCHLORIDE
     Indication: HYPERTENSION
     Dosage: 50 MG, TID
     Route: 065
     Dates: start: 20140124
  13. PREMARIN [Concomitant]
     Active Substance: ESTROGENS, CONJUGATED
     Indication: PRODUCT USED FOR UNKNOWN INDICATION
     Route: 065
  14. PROCARDIA XL [Concomitant]
     Active Substance: NIFEDIPINE
     Indication: HYPERTENSION
     Dosage: 90 MG, DAILY
     Route: 048
     Dates: start: 20081031
  15. METOPROLOL [Concomitant]
     Active Substance: METOPROLOL
     Indication: ARRHYTHMIA
  16. PRAVASTATIN [Concomitant]
     Active Substance: PRAVASTATIN\PRAVASTATIN SODIUM
     Indication: BLOOD CHOLESTEROL INCREASED
     Dosage: 20 MG, DAILY
     Route: 048
     Dates: start: 20130430
  17. AVAPRO [Concomitant]
     Active Substance: IRBESARTAN
     Indication: PRODUCT USED FOR UNKNOWN INDICATION
     Dosage: 150 MG, BID
     Route: 065

REACTIONS (79)
  - Phaeochromocytoma [Unknown]
  - Vascular headache [Unknown]
  - Tremor [Unknown]
  - Abdominal pain [Unknown]
  - Nocturia [Unknown]
  - Cholangitis [Unknown]
  - Malaise [Unknown]
  - Pyrexia [Unknown]
  - Hyperhidrosis [Unknown]
  - Colitis [Unknown]
  - Labile hypertension [Unknown]
  - Pneumonia [Unknown]
  - Adenoma benign [Unknown]
  - Biliary colic [Unknown]
  - Febrile infection [Unknown]
  - Headache [Unknown]
  - Pancreatolithiasis [Unknown]
  - Aortic arteriosclerosis [Unknown]
  - Hypothyroidism [Unknown]
  - Ecchymosis [Unknown]
  - Dizziness [Unknown]
  - Major depression [Unknown]
  - Disturbance in attention [Unknown]
  - Apathy [Unknown]
  - Abdominal mass [Unknown]
  - Trigonitis [Unknown]
  - Dehydration [Unknown]
  - Gastritis [Unknown]
  - Pelvic pain [Unknown]
  - Abdominal tenderness [Unknown]
  - Acute sinusitis [Unknown]
  - Chills [Unknown]
  - Upper-airway cough syndrome [Unknown]
  - Sinus headache [Unknown]
  - Cardiomegaly [Unknown]
  - Oedema peripheral [Unknown]
  - Choking sensation [Unknown]
  - Decreased appetite [Unknown]
  - Flushing [Unknown]
  - Depression [Unknown]
  - Pleurisy [Unknown]
  - Pleuritic pain [Unknown]
  - Bacterial sepsis [Unknown]
  - Chronic sinusitis [Unknown]
  - Abdominal discomfort [Unknown]
  - Biliary dilatation [Unknown]
  - Cyst [Unknown]
  - Anxiety disorder [Unknown]
  - Feeling abnormal [Unknown]
  - Costochondritis [Unknown]
  - Hypokinesia [Unknown]
  - Back pain [Unknown]
  - Gastroenteritis [Unknown]
  - Palpitations [Unknown]
  - Vasodilatation [Unknown]
  - Gastrooesophageal reflux disease [Unknown]
  - Azotaemia [Unknown]
  - Hepatic cyst [Unknown]
  - Middle insomnia [Unknown]
  - Urinary bladder adenoma [Unknown]
  - Leukocytosis [Unknown]
  - Facial pain [Unknown]
  - Abdominal distension [Unknown]
  - Bile duct obstruction [Unknown]
  - Deep vein thrombosis [Unknown]
  - Fluid retention [Recovering/Resolving]
  - Depressed mood [Unknown]
  - Discomfort [Unknown]
  - Vomiting [Recovered/Resolved]
  - Acidosis [Unknown]
  - Cushingoid [Unknown]
  - Nervousness [Unknown]
  - Dysphoria [Unknown]
  - Dyspnoea [Unknown]
  - Cardiac failure [Unknown]
  - Kyphosis [Unknown]
  - Osteoarthritis [Unknown]
  - Hiatus hernia [Unknown]
  - Granuloma [Unknown]

NARRATIVE: CASE EVENT DATE: 1999
